FAERS Safety Report 17832434 (Version 1)
Quarter: 2020Q2

REPORT INFORMATION
  Report Type: Spontaneous
  Country: US (occurrence: US)
  Receive Date: 20200528
  Receipt Date: 20200528
  Transmission Date: 20200714
  Serious: No
  Sender: FDA-Public Use
  Company Number: US-009507513-2005USA006224

PATIENT
  Age: 69 Year
  Sex: Male

DRUGS (4)
  1. BELSOMRA [Suspect]
     Active Substance: SUVOREXANT
     Indication: INSOMNIA
     Dosage: ONE PILL, ONCE 30 MINUTES BEFORE BED
     Route: 048
     Dates: start: 20200510, end: 20200510
  2. BELSOMRA [Suspect]
     Active Substance: SUVOREXANT
     Dosage: ONCE 30 MINUTES BEFORE BED
     Route: 048
     Dates: start: 20200511, end: 20200511
  3. COZAAR [Concomitant]
     Active Substance: LOSARTAN POTASSIUM
     Dosage: UNK
  4. BELSOMRA [Suspect]
     Active Substance: SUVOREXANT
     Dosage: ONCE 30 MINUTES BEFORE BED
     Dates: start: 20200512, end: 20200513

REACTIONS (3)
  - Drug ineffective [Unknown]
  - Intentional product misuse [Unknown]
  - Psychomotor hyperactivity [Recovered/Resolved]

NARRATIVE: CASE EVENT DATE: 20200510
